FAERS Safety Report 4541142-X (Version None)
Quarter: 2004Q4

REPORT INFORMATION
  Report Type: 
  Country: None (occurrence: None)
  Receive Date: 20041228
  Receipt Date: 20041221
  Transmission Date: 20050328
  Serious: Yes (Hospitalization)
  Sender: FDA-Public Use
  Company Number: TPA2004A01333

PATIENT
  Age: 68 Year
  Sex: Female
  Weight: 79.3795 kg

DRUGS (3)
  1. ACTOS [Suspect]
     Indication: DIABETES MELLITUS NON-INSULIN-DEPENDENT
     Dosage: 30 MG, 1 IN D, PER ORAL
     Route: 048
     Dates: start: 20040205, end: 20041108
  2. SYNTHROID (LEVOTHYROXINE SODIUM) (125 MICROGRAM) [Concomitant]
  3. DIOVAN (VALSARTAN) - (80 MILLIGRAM) [Concomitant]

REACTIONS (7)
  - BLOOD TEST ABNORMAL [None]
  - BRONCHITIS [None]
  - INFLUENZA [None]
  - NAUSEA [None]
  - PHARYNGOLARYNGEAL PAIN [None]
  - RHINORRHOEA [None]
  - VOMITING [None]
